FAERS Safety Report 8804572 (Version 1)
Quarter: 2012Q4

REPORT INFORMATION
  Report Type: 
  Country: JP (occurrence: JP)
  Receive Date: 20120924
  Receipt Date: 20120924
  Transmission Date: 20130627
  Serious: Yes (Hospitalization)
  Sender: FDA-Public Use
  Company Number: JP-GE HEALTHCARE MEDICAL DIAGNOSTICS-OMPQ-NO-1108S-0943

PATIENT
  Age: 71 Year
  Sex: Male
  Weight: 84.4 kg

DRUGS (11)
  1. OMNIPAQUE [Suspect]
     Indication: ACUTE MYOCARDIAL INFARCTION
     Route: 022
     Dates: start: 20110804, end: 20110804
  2. OMNIPAQUE [Suspect]
     Indication: HYPERURICAEMIA
     Route: 022
     Dates: start: 20110817, end: 20110817
  3. OMNIPAQUE [Suspect]
     Indication: CORONARY ANGIOPLASTY
  4. ARTIST [Suspect]
  5. CLOPIDOGREL [Suspect]
     Dates: start: 20110804
  6. BAYASPIRIN [Concomitant]
     Dates: start: 20110805
  7. TAKEPRON [Concomitant]
     Dates: start: 20110804, end: 20110819
  8. BLOPRESS [Concomitant]
     Dates: start: 20110805, end: 20110819
  9. GEMFIBROZIL (LOCHOL) [Concomitant]
     Dates: start: 20110805, end: 20110819
  10. SIGMART [Concomitant]
     Dates: start: 20110805
  11. MAGMITT [Concomitant]
     Dates: start: 20110808

REACTIONS (4)
  - Erythema [Recovered/Resolved]
  - Pruritus [Recovered/Resolved]
  - Rash [Recovered/Resolved]
  - Drug eruption [Recovered/Resolved]
